FAERS Safety Report 19698180 (Version 1)
Quarter: 2021Q3

REPORT INFORMATION
  Report Type: Spontaneous
  Country: FR (occurrence: FR)
  Receive Date: 20210812
  Receipt Date: 20210812
  Transmission Date: 20211014
  Serious: Yes (Hospitalization)
  Sender: FDA-Public Use
  Company Number: FR-BAUSCH-BL-2021-026847

PATIENT
  Age: 58 Year
  Sex: Female
  Weight: 61.8 kg

DRUGS (7)
  1. PREDNISOLONE. [Suspect]
     Active Substance: PREDNISOLONE
     Indication: INFECTION
     Route: 065
     Dates: start: 20210601, end: 20210607
  2. COVERSYL [Suspect]
     Active Substance: PERINDOPRIL
     Indication: HYPERTENSION
     Route: 065
     Dates: end: 20210607
  3. PRIMALAN [Suspect]
     Active Substance: MEQUITAZINE
     Indication: COUGH
     Route: 065
     Dates: start: 20210601, end: 20210607
  4. CIFLOX [Suspect]
     Active Substance: CIPROFLOXACIN
     Indication: PNEUMONIA
     Route: 065
     Dates: start: 20210601, end: 20210607
  5. FORMOTEROL (FUMARATE) DIHYDRATE [Suspect]
     Active Substance: FORMOTEROL FUMARATE DIHYDRATE
     Indication: COUGH
     Route: 065
     Dates: start: 20210601, end: 20210607
  6. PHOLCODINE [Suspect]
     Active Substance: PHOLCODINE
     Indication: COUGH
     Route: 065
     Dates: start: 20210601, end: 20210607
  7. AMOXICILLINE [Suspect]
     Active Substance: AMOXICILLIN
     Indication: PNEUMONIA
     Route: 065
     Dates: start: 20210525, end: 20210601

REACTIONS (1)
  - Tubulointerstitial nephritis and uveitis syndrome [Recovering/Resolving]

NARRATIVE: CASE EVENT DATE: 202106
